FAERS Safety Report 8907394 (Version 1)
Quarter: 2012Q4

REPORT INFORMATION
  Report Type: 
  Country: US (occurrence: US)
  Receive Date: 20121113
  Receipt Date: 20121113
  Transmission Date: 20130627
  Serious: No
  Sender: FDA-Public Use
  Company Number: US-AMGEN-USASP2012010477

PATIENT
  Age: 66 Year
  Sex: Female
  Weight: 112.2 kg

DRUGS (19)
  1. ENBREL [Suspect]
     Indication: RHEUMATOID ARTHRITIS
     Dosage: 50 mg, qwk
     Route: 058
  2. SINGULAIR [Concomitant]
     Dosage: 10 mg, UNK
  3. METHOTREXATE [Concomitant]
     Dosage: 2.5 mg, UNK
  4. ZITHROMAX [Concomitant]
     Dosage: 600 mg, UNK
  5. CYCLOBENZAPRINE [Concomitant]
     Dosage: 10 mg, UNK
  6. SUCRALFATE [Concomitant]
     Dosage: 1 g, UNK
  7. ADVAIR HFA [Concomitant]
     Dosage: UNK
  8. PREVACID [Concomitant]
     Dosage: 15 mg, UNK
  9. GLUCOSAMINE + CHONDROITIN          /01430901/ [Concomitant]
     Dosage: UNK
  10. BUPROPION [Concomitant]
     Dosage: 150 mg, UNK
  11. PROAIR HFA [Concomitant]
     Dosage: UNK
  12. B COMPLEX                          /00212701/ [Concomitant]
     Dosage: UNK
  13. MULTIVITAMIN                       /00097801/ [Concomitant]
     Dosage: UNK
  14. TUSSIN DM [Concomitant]
     Dosage: UNK
  15. TRAMADOL HCL [Concomitant]
     Dosage: 200 mg, UNK
  16. TYLENOL /00020001/ [Concomitant]
     Dosage: 500 mg, UNK
  17. FOLIC ACID [Concomitant]
     Dosage: 5 mg, UNK
  18. CITRACAL + D                       /01438101/ [Concomitant]
     Dosage: UNK
  19. HYDROCHLOROTHIAZIDE W/TRIAMTERENE [Concomitant]
     Dosage: UNK

REACTIONS (2)
  - Rheumatoid arthritis [Recovering/Resolving]
  - Bronchitis [Recovering/Resolving]
